FAERS Safety Report 15952183 (Version 2)
Quarter: 2019Q1

REPORT INFORMATION
  Report Type: Spontaneous
  Country: QA (occurrence: US)
  Receive Date: 20190212
  Receipt Date: 20190312
  Transmission Date: 20190417
  Serious: No
  Sender: FDA-Public Use
  Company Number: QA-SA-2019SA036401

PATIENT
  Age: 54 Year
  Sex: Female

DRUGS (2)
  1. BENADRYL [Concomitant]
     Active Substance: DIPHENHYDRAMINE HYDROCHLORIDE
     Dosage: IN THE EVENING
     Route: 065
  2. ALLEGRA ALLERGY [Suspect]
     Active Substance: FEXOFENADINE HYDROCHLORIDE
     Indication: URTICARIA CHRONIC
     Dosage: 180 MG 5X DAILY TWO IN THE MORNING ONE IN THE AFTERNOON AND TWO AT NIGHT
     Route: 065
     Dates: start: 201810

REACTIONS (3)
  - Product colour issue [Unknown]
  - Extra dose administered [Unknown]
  - Drug effect incomplete [Unknown]
